FAERS Safety Report 9749771 (Version 2)
Quarter: 2013Q4

REPORT INFORMATION
  Report Type: Spontaneous
  Country: US (occurrence: US)
  Receive Date: 20131212
  Receipt Date: 20131213
  Transmission Date: 20140711
  Serious: Yes (Other)
  Sender: FDA-Public Use
  Company Number: US-TEVA-394963USA

PATIENT
  Age: 32 Year
  Sex: Female
  Weight: 72.64 kg

DRUGS (1)
  1. PARAGARD 380A [Suspect]
     Indication: CONTRACEPTION
     Route: 015
     Dates: start: 201211, end: 20130322

REACTIONS (5)
  - Urinary tract infection [Unknown]
  - Menorrhagia [Recovered/Resolved]
  - Dysmenorrhoea [Recovered/Resolved]
  - Vaginal infection [Recovered/Resolved]
  - Pain [Unknown]
